FAERS Safety Report 7044601-3 (Version None)
Quarter: 2010Q4

REPORT INFORMATION
  Report Type: 
  Country: None (occurrence: None)
  Receive Date: 20101014
  Receipt Date: 20101004
  Transmission Date: 20110411
  Serious: Yes (Hospitalization, Other)
  Sender: FDA-Public Use
  Company Number: US-ABBOTT-10P-163-0676301-00

PATIENT
  Sex: Male
  Weight: 100.5 kg

DRUGS (8)
  1. HUMIRA [Suspect]
     Indication: RHEUMATOID ARTHRITIS
     Route: 058
     Dates: start: 20080501, end: 20081101
  2. FOLATE [Concomitant]
     Indication: PRODUCT USED FOR UNKNOWN INDICATION
  3. PREDNISONE [Concomitant]
     Indication: ARTHRITIS
     Route: 048
  4. PLAQUENIL [Concomitant]
     Indication: PRODUCT USED FOR UNKNOWN INDICATION
  5. METHOTREXATE [Concomitant]
     Indication: PRODUCT USED FOR UNKNOWN INDICATION
     Route: 048
  6. ASPIRIN [Concomitant]
     Indication: PRODUCT USED FOR UNKNOWN INDICATION
     Route: 048
  7. LIPITOR [Concomitant]
     Indication: PRODUCT USED FOR UNKNOWN INDICATION
     Route: 048
  8. PLAVIX [Concomitant]
     Indication: PRODUCT USED FOR UNKNOWN INDICATION
     Dosage: DAILY
     Dates: start: 20060101

REACTIONS (104)
  - ABASIA [None]
  - ABDOMINAL PAIN [None]
  - ALOPECIA [None]
  - ANAEMIA [None]
  - APNOEA [None]
  - ARTHRALGIA [None]
  - ASTHENIA [None]
  - ATELECTASIS [None]
  - ATRIAL FIBRILLATION [None]
  - BACK PAIN [None]
  - BLADDER SPASM [None]
  - BLISTER [None]
  - BLOOD HOMOCYSTEINE INCREASED [None]
  - BLOOD PRESSURE INCREASED [None]
  - BRACHIAL PLEXOPATHY [None]
  - BURSITIS [None]
  - CHILLS [None]
  - COMPARTMENT SYNDROME [None]
  - COUGH [None]
  - CYST [None]
  - DECUBITUS ULCER [None]
  - DEEP VEIN THROMBOSIS [None]
  - DERMATITIS CONTACT [None]
  - DIARRHOEA [None]
  - DYSPEPSIA [None]
  - DYSPNOEA [None]
  - DYSPNOEA EXERTIONAL [None]
  - ERYTHEMA [None]
  - EXCORIATION [None]
  - EXOSTOSIS [None]
  - FINGER DEFORMITY [None]
  - FLUID OVERLOAD [None]
  - FOOT DEFORMITY [None]
  - GAIT DISTURBANCE [None]
  - GASTROOESOPHAGEAL REFLUX DISEASE [None]
  - GENERALISED OEDEMA [None]
  - GRAFT INFECTION [None]
  - GRAFT THROMBOSIS [None]
  - HAEMATOCHEZIA [None]
  - HAEMATOMA INFECTION [None]
  - HEPATIC LESION [None]
  - HYPOAESTHESIA [None]
  - HYPOTENSION [None]
  - HYPOXIA [None]
  - IMPAIRED WORK ABILITY [None]
  - INFLUENZA LIKE ILLNESS [None]
  - INTERMITTENT CLAUDICATION [None]
  - INTERNATIONAL NORMALISED RATIO DECREASED [None]
  - JOINT RANGE OF MOTION DECREASED [None]
  - LOCAL SWELLING [None]
  - LOCALISED OEDEMA [None]
  - LOSS OF CONSCIOUSNESS [None]
  - MALAISE [None]
  - MONONEUROPATHY [None]
  - MOTOR DYSFUNCTION [None]
  - MUSCULOSKELETAL DISCOMFORT [None]
  - NASAL CONGESTION [None]
  - NASOPHARYNGITIS [None]
  - NECK PAIN [None]
  - NEUROPATHY PERIPHERAL [None]
  - NODULE ON EXTREMITY [None]
  - OEDEMA [None]
  - OEDEMA PERIPHERAL [None]
  - OSTEOARTHRITIS [None]
  - OSTEOMYELITIS [None]
  - OSTEOPENIA [None]
  - OVERDOSE [None]
  - OXYGEN SATURATION DECREASED [None]
  - PAIN [None]
  - PAIN IN EXTREMITY [None]
  - PARAESTHESIA [None]
  - PATELLOFEMORAL PAIN SYNDROME [None]
  - PENILE OEDEMA [None]
  - PERIPHERAL COLDNESS [None]
  - PERIPHERAL ISCHAEMIA [None]
  - PERONEAL NERVE PALSY [None]
  - PLEURAL EFFUSION [None]
  - PRURITUS [None]
  - PULMONARY EMBOLISM [None]
  - PYREXIA [None]
  - QUALITY OF LIFE DECREASED [None]
  - RADIAL PULSE DECREASED [None]
  - RENAL FAILURE ACUTE [None]
  - SCROTAL OEDEMA [None]
  - SCROTAL SWELLING [None]
  - SEPTIC SHOCK [None]
  - SEROMA [None]
  - SKIN EXFOLIATION [None]
  - SKIN IRRITATION [None]
  - SKIN LESION [None]
  - SKIN MACERATION [None]
  - SPINAL OSTEOARTHRITIS [None]
  - STAPHYLOCOCCAL BACTERAEMIA [None]
  - TACHYCARDIA [None]
  - TENDONITIS [None]
  - TREMOR [None]
  - TYPE 2 DIABETES MELLITUS [None]
  - VENOUS OCCLUSION [None]
  - VITAMIN B12 DECREASED [None]
  - VITAMIN D DECREASED [None]
  - WALKING AID USER [None]
  - WOUND [None]
  - WOUND COMPLICATION [None]
  - WOUND DEHISCENCE [None]
